FAERS Safety Report 10204003 (Version 1)
Quarter: 2014Q2

REPORT INFORMATION
  Report Type: Spontaneous
  Country: US (occurrence: US)
  Receive Date: 20140529
  Receipt Date: 20140529
  Transmission Date: 20141212
  Serious: No
  Sender: FDA-Public Use
  Company Number: US-009507513-1405USA012998

PATIENT
  Sex: Male

DRUGS (2)
  1. CLARITIN CHEWABLE TABLETS [Suspect]
     Indication: NASAL CONGESTION
     Dosage: EVERY MORNING
     Route: 048
     Dates: start: 2014
  2. CLARITIN CHEWABLE TABLETS [Suspect]
     Indication: SNEEZING

REACTIONS (1)
  - Drug effect incomplete [Unknown]
